FAERS Safety Report 7079273-5 (Version None)
Quarter: 2010Q4

REPORT INFORMATION
  Report Type: 
  Country: None (occurrence: None)
  Receive Date: 20101102
  Receipt Date: 20101029
  Transmission Date: 20110411
  Serious: Yes (Other)
  Sender: FDA-Public Use
  Company Number: US-ABBOTT-10P-163-0682147-00

PATIENT
  Age: 26 Year
  Sex: Female

DRUGS (3)
  1. NORVIR [Suspect]
     Indication: ANTIRETROVIRAL THERAPY
     Route: 048
  2. REYATAZ [Suspect]
     Indication: ANTIRETROVIRAL THERAPY
     Route: 048
  3. TRUVADA [Suspect]
     Indication: ANTIRETROVIRAL THERAPY
     Dosage: 1 TABLET/CAPSULES

REACTIONS (3)
  - CHORIOAMNIONITIS [None]
  - MATERNAL DRUGS AFFECTING FOETUS [None]
  - STILLBIRTH [None]
